FAERS Safety Report 10136376 (Version 1)
Quarter: 2014Q2

REPORT INFORMATION
  Report Type: Spontaneous
  Country: GB (occurrence: None)
  Receive Date: 20140425
  Receipt Date: 20140425
  Transmission Date: 20141212
  Serious: Yes (Death, Congenital Anomaly, Other)
  Sender: FDA-Public Use
  Company Number: AUR-APL-2014-04672

PATIENT
  Sex: 0

DRUGS (2)
  1. SERTRALINE (SERTRALINE) [Suspect]
     Indication: PRODUCT USED FOR UNKNOWN INDICATION
     Route: 064
  2. THYROXINE (LEVOTHYROXINE SODIUM) [Concomitant]

REACTIONS (7)
  - Foetal exposure during pregnancy [None]
  - Anencephaly [None]
  - Craniorachischisis [None]
  - Cystic lymphangioma [None]
  - Teratogenicity [None]
  - Neural tube defect [None]
  - Congenital anomaly [None]
